FAERS Safety Report 17055325 (Version 1)
Quarter: 2019Q4

REPORT INFORMATION
  Report Type: Report from Study
  Country: GR (occurrence: GR)
  Receive Date: 20191120
  Receipt Date: 20191120
  Transmission Date: 20200122
  Serious: Yes (Other)
  Sender: FDA-Public Use
  Company Number: GR-BAUSCH-BL-2019-061840

PATIENT
  Sex: Female

DRUGS (2)
  1. DEXAMETHASONE. [Suspect]
     Active Substance: DEXAMETHASONE
     Indication: PLASMA CELL MYELOMA
     Route: 065
     Dates: start: 20170619
  2. POMALIDOMIDE [Suspect]
     Active Substance: POMALIDOMIDE
     Indication: PLASMA CELL MYELOMA
     Dosage: 1 UNSPECIFIED UNIT
     Route: 048
     Dates: start: 20170619

REACTIONS (4)
  - Neutropenia [Unknown]
  - Muscle spasms [Unknown]
  - Bronchospasm [Unknown]
  - Heat oedema [Unknown]

NARRATIVE: CASE EVENT DATE: 20171102
